FAERS Safety Report 7436647-8 (Version None)
Quarter: 2011Q2

REPORT INFORMATION
  Report Type: 
  Country: None (occurrence: None)
  Receive Date: 20110426
  Receipt Date: 20110414
  Transmission Date: 20111010
  Serious: Yes (Other)
  Sender: FDA-Public Use
  Company Number: US-JNJFOC-20110406939

PATIENT
  Sex: Female

DRUGS (2)
  1. DURAGESIC-100 [Suspect]
     Indication: BACK PAIN
     Route: 062
  2. FENTANYL-100 [Suspect]
     Indication: BACK PAIN
     Route: 062

REACTIONS (6)
  - DRUG ADMINISTRATION ERROR [None]
  - BODY HEIGHT DECREASED [None]
  - SPINAL COMPRESSION FRACTURE [None]
  - FEELING ABNORMAL [None]
  - CONVULSION [None]
  - DRUG INEFFECTIVE [None]
